FAERS Safety Report 20669101 (Version 1)
Quarter: 2022Q2

REPORT INFORMATION
  Report Type: Spontaneous
  Country: PR (occurrence: PR)
  Receive Date: 20220404
  Receipt Date: 20220404
  Transmission Date: 20220721
  Serious: No
  Sender: FDA-Public Use
  Company Number: PR-BIOVITRUM-2021PR12427

PATIENT
  Age: 0 Year
  Sex: Male

DRUGS (2)
  1. SYNAGIS [Suspect]
     Active Substance: PALIVIZUMAB
     Indication: Premature baby
     Dosage: 31.0500-DOSE ,UNITS NOT REPORTED
     Route: 030
     Dates: start: 20211109
  2. SYNAGIS [Suspect]
     Active Substance: PALIVIZUMAB
     Dosage: 105.4500-DOSE ,UNITS NOT REPORTED
     Route: 030
     Dates: start: 20220322

REACTIONS (2)
  - Constipation [Unknown]
  - Pyrexia [Unknown]

NARRATIVE: CASE EVENT DATE: 20211129
